FAERS Safety Report 6082367-4 (Version None)
Quarter: 2009Q1

REPORT INFORMATION
  Report Type: 
  Country: None (occurrence: None)
  Receive Date: 20090218
  Receipt Date: 20090212
  Transmission Date: 20090719
  Serious: Yes (Hospitalization)
  Sender: FDA-Public Use
  Company Number: FR-AVENTIS-200910710EU

PATIENT
  Age: 86 Year
  Sex: Female

DRUGS (5)
  1. FLUDEX                             /00340101/ [Suspect]
     Dosage: DOSE: UNK
     Route: 048
     Dates: end: 20081203
  2. LERCAN [Suspect]
     Dosage: DOSE: UNK
     Route: 048
     Dates: end: 20081203
  3. TANAKAN                            /01003103/ [Concomitant]
     Dates: end: 20081203
  4. TRIMEBUTINE [Concomitant]
     Dates: end: 20081203
  5. FENOFIBRATE [Concomitant]

REACTIONS (3)
  - FALL [None]
  - FEMUR FRACTURE [None]
  - ORTHOSTATIC HYPOTENSION [None]
